FAERS Safety Report 8168062-6 (Version None)
Quarter: 2012Q1

REPORT INFORMATION
  Report Type: 
  Country: None (occurrence: None)
  Receive Date: 20120227
  Receipt Date: 20120214
  Transmission Date: 20120608
  Serious: Yes (Hospitalization)
  Sender: FDA-Public Use
  Company Number: PHHY2012US014520

PATIENT
  Age: 50 Year
  Sex: Female

DRUGS (2)
  1. ENBREL [Suspect]
     Dosage: TWICE WEEKLY
  2. ESTRADIOL [Suspect]
     Dosage: TWICE WEEKLY
     Route: 062

REACTIONS (28)
  - RENAL IMPAIRMENT [None]
  - RENAL FAILURE ACUTE [None]
  - CEREBRAL DISORDER [None]
  - MALAISE [None]
  - ASPARTATE AMINOTRANSFERASE INCREASED [None]
  - MENTAL IMPAIRMENT [None]
  - CONVULSION [None]
  - THROMBOCYTOPENIA [None]
  - COMPLEMENT FACTOR C4 DECREASED [None]
  - MICROANGIOPATHY [None]
  - THROMBOTIC MICROANGIOPATHY [None]
  - NAUSEA [None]
  - HAPTOGLOBIN DECREASED [None]
  - PLEURAL EFFUSION [None]
  - BRAIN INJURY [None]
  - DIARRHOEA HAEMORRHAGIC [None]
  - COMPLEMENT FACTOR C3 DECREASED [None]
  - RESPIRATORY DISORDER [None]
  - HAEMOLYTIC URAEMIC SYNDROME [None]
  - SEPSIS [None]
  - ABDOMINAL PAIN [None]
  - WHITE BLOOD CELL COUNT INCREASED [None]
  - BLOOD LACTATE DEHYDROGENASE INCREASED [None]
  - HAEMOLYSIS [None]
  - COLITIS [None]
  - RETICULOCYTE COUNT INCREASED [None]
  - RED BLOOD CELL SCHISTOCYTES PRESENT [None]
  - UNRESPONSIVE TO STIMULI [None]
